FAERS Safety Report 18902638 (Version 4)
Quarter: 2021Q2

REPORT INFORMATION
  Report Type: Report from Study
  Country: JP (occurrence: JP)
  Receive Date: 20210217
  Receipt Date: 20210613
  Transmission Date: 20210717
  Serious: Yes (Hospitalization)
  Sender: FDA-Public Use
  Company Number: NVSJ2021JP002396

PATIENT
  Age: 56 Year
  Sex: Female
  Weight: 40.1 kg

DRUGS (4)
  1. ILARIS [Suspect]
     Active Substance: CANAKINUMAB
     Dosage: 150 MG
     Route: 058
     Dates: start: 20200904, end: 20200904
  2. ILARIS [Suspect]
     Active Substance: CANAKINUMAB
     Indication: FAMILIAL MEDITERRANEAN FEVER
     Dosage: 150 MG
     Route: 058
     Dates: start: 20200623
  3. COLCHICINE. [Concomitant]
     Active Substance: COLCHICINE
     Indication: FAMILIAL MEDITERRANEAN FEVER
     Dosage: 0.5 MG
     Route: 048
     Dates: start: 20190905
  4. ILARIS [Suspect]
     Active Substance: CANAKINUMAB
     Dosage: 150 MG
     Route: 058
     Dates: start: 20200721

REACTIONS (2)
  - C-reactive protein increased [Recovered/Resolved]
  - Intestinal haemorrhage [Recovering/Resolving]

NARRATIVE: CASE EVENT DATE: 20200821
